FAERS Safety Report 7941267-2 (Version None)
Quarter: 2011Q4

REPORT INFORMATION
  Report Type: 
  Country: None (occurrence: None)
  Receive Date: 20111128
  Receipt Date: 20111117
  Transmission Date: 20120403
  Serious: Yes (Hospitalization)
  Sender: FDA-Public Use
  Company Number: DE-ELI_LILLY_AND_COMPANY-DE201111005312

PATIENT
  Sex: Female

DRUGS (3)
  1. FENTANYL [Concomitant]
  2. FORTEO [Suspect]
     Indication: OSTEOPOROSIS
     Dosage: UNK, QD
     Route: 058
     Dates: start: 20101029
  3. BOTOX [Concomitant]

REACTIONS (2)
  - FAECALITH [None]
  - INTESTINAL ATRESIA [None]
